FAERS Safety Report 8969111 (Version 1)
Quarter: 2012Q4

REPORT INFORMATION
  Report Type: Report from Study
  Country: NL (occurrence: NL)
  Receive Date: 20121218
  Receipt Date: 20121218
  Transmission Date: 20130627
  Serious: Yes (Hospitalization)
  Sender: FDA-Public Use
  Company Number: NL-BAXTER-2012BAX027140

PATIENT
  Age: 78 Year
  Sex: Male
  Weight: 80 kg

DRUGS (7)
  1. ENDOXAN I.V., POEDER VOOR OPLOSSING VOOR INJECTIE 200, 500, 1000 MG [Suspect]
     Indication: DIFFUSE LARGE B-CELL LYMPHOMA
     Route: 065
     Dates: start: 20091110, end: 20091222
  2. RITUXIMAB [Suspect]
     Indication: DIFFUSE LARGE B-CELL LYMPHOMA
     Route: 065
     Dates: start: 20091109, end: 20091222
  3. PREDNISOLONE [Suspect]
     Indication: DIFFUSE LARGE B-CELL LYMPHOMA
     Route: 065
     Dates: start: 20091110
  4. PREDNISOLONE [Suspect]
     Route: 065
     Dates: start: 20091222, end: 20091226
  5. DOXORUBICIN [Suspect]
     Indication: DIFFUSE LARGE B-CELL LYMPHOMA
     Route: 065
     Dates: start: 20091110, end: 20091222
  6. VINCRISTINE [Suspect]
     Indication: DIFFUSE LARGE B-CELL LYMPHOMA
     Route: 065
     Dates: start: 20091110, end: 20091222
  7. G-CSF [Suspect]
     Indication: DIFFUSE LARGE B-CELL LYMPHOMA
     Route: 065
     Dates: start: 20091111, end: 20091223

REACTIONS (2)
  - Cardiac failure [Recovered/Resolved]
  - Left ventricular dysfunction [Recovered/Resolved]
